FAERS Safety Report 9002191 (Version 1)
Quarter: 2013Q1

REPORT INFORMATION
  Report Type: Spontaneous
  Country: US (occurrence: None)
  Receive Date: 20130103
  Receipt Date: 20130103
  Transmission Date: 20140127
  Serious: Yes (Hospitalization)
  Sender: FDA-Public Use
  Company Number: None

PATIENT
  Age: 70 Year
  Sex: Male
  Weight: 99.7 kg

DRUGS (4)
  1. BORTEZOMIB [Suspect]
     Indication: B-CELL SMALL LYMPHOCYTIC LYMPHOMA
     Dosage: 3.6 MG  Q 7 DAYS  IV
     Route: 042
     Dates: start: 20120730, end: 20120917
  2. BORTEZOMIB [Suspect]
     Indication: CHRONIC LYMPHOCYTIC LEUKAEMIA
     Dosage: 3.6 MG  Q 7 DAYS  IV
     Route: 042
     Dates: start: 20120730, end: 20120917
  3. TEMSIROLIMUS [Suspect]
     Indication: B-CELL SMALL LYMPHOCYTIC LYMPHOMA
     Dosage: 25 MG Q 7 DAYS  IV
     Route: 042
     Dates: start: 20120730, end: 20120917
  4. TEMSIROLIMUS [Suspect]
     Indication: CHRONIC LYMPHOCYTIC LEUKAEMIA
     Dosage: 25 MG Q 7 DAYS  IV
     Route: 042
     Dates: start: 20120730, end: 20120917

REACTIONS (18)
  - Abdominal pain lower [None]
  - Constipation [None]
  - Productive cough [None]
  - Nausea [None]
  - Vomiting [None]
  - Neutropenia [None]
  - Dyspnoea [None]
  - Chills [None]
  - Chills [None]
  - Hyperhidrosis [None]
  - Pleural effusion [None]
  - Lung consolidation [None]
  - Anaemia of malignant disease [None]
  - Lymphadenopathy [None]
  - B-cell small lymphocytic lymphoma [None]
  - Malignant neoplasm progression [None]
  - Chronic lymphocytic leukaemia [None]
  - Fatigue [None]
